FAERS Safety Report 25922592 (Version 1)
Quarter: 2025Q4

REPORT INFORMATION
  Report Type: Spontaneous
  Country: US (occurrence: US)
  Receive Date: 20251015
  Receipt Date: 20251015
  Transmission Date: 20260117
  Serious: No
  Sender: ABBVIE
  Company Number: US-ABBVIE-6495906

PATIENT
  Sex: Female

DRUGS (1)
  1. ARMOUR THYROID [Suspect]
     Active Substance: THYROID, PORCINE
     Indication: Hypothyroidism
     Route: 048

REACTIONS (6)
  - Vertigo [Unknown]
  - Nausea [Unknown]
  - Illness [Unknown]
  - Dizziness [Unknown]
  - Fibromyalgia [Unknown]
  - Gastrointestinal disorder [Unknown]
